FAERS Safety Report 21366156 (Version 3)
Quarter: 2022Q4

REPORT INFORMATION
  Report Type: Report from Study
  Country: ES (occurrence: ES)
  Receive Date: 20220922
  Receipt Date: 20221003
  Transmission Date: 20230112
  Serious: Yes (Other)
  Sender: FDA-Public Use
  Company Number: ES-GILEAD-2022-0598769

PATIENT
  Age: 41 Year
  Sex: Female

DRUGS (7)
  1. SACITUZUMAB GOVITECAN [Suspect]
     Active Substance: SACITUZUMAB GOVITECAN
     Indication: Neoplasm malignant
     Dosage: UNK
     Route: 065
     Dates: start: 20220719
  2. FILGRASTIM [Concomitant]
     Active Substance: FILGRASTIM
  3. ZOLEDRONIC [Concomitant]
     Active Substance: ZOLEDRONIC ACID
  4. HUMAN RED BLOOD CELL [Concomitant]
     Active Substance: HUMAN RED BLOOD CELL
  5. FUROSEMIDE [Concomitant]
     Active Substance: FUROSEMIDE
  6. PACLITAXEL [Concomitant]
     Active Substance: PACLITAXEL
  7. PEMBROLIZUMAB [Concomitant]
     Active Substance: PEMBROLIZUMAB

REACTIONS (1)
  - Acute myeloid leukaemia [Unknown]
